FAERS Safety Report 9550242 (Version 1)
Quarter: 2013Q3

REPORT INFORMATION
  Report Type: Spontaneous
  Country: US (occurrence: US)
  Receive Date: 20130924
  Receipt Date: 20130924
  Transmission Date: 20140515
  Serious: No
  Sender: FDA-Public Use
  Company Number: US-SANOFI-AVENTIS-2013SA065588

PATIENT
  Age: 43 Year
  Sex: Female
  Weight: 55.79 kg

DRUGS (7)
  1. AUBAGIO [Suspect]
     Indication: MULTIPLE SCLEROSIS
     Route: 048
     Dates: start: 20130521
  2. ZONISAMIDE [Concomitant]
     Route: 065
  3. CALCIUM/VITAMIN D [Concomitant]
     Route: 065
  4. VITAMIN C [Concomitant]
     Route: 065
  5. VITAMIN D3 [Concomitant]
     Dosage: FORM: SOFTGEL DOSE:5000 UNIT(S)
     Route: 065
  6. MULTIVITAMINS [Concomitant]
     Route: 065
  7. REBIF [Concomitant]

REACTIONS (2)
  - Fatigue [Recovering/Resolving]
  - Tremor [Not Recovered/Not Resolved]
